FAERS Safety Report 4809155-8 (Version None)
Quarter: 2005Q4

REPORT INFORMATION
  Report Type: 
  Country: None (occurrence: None)
  Receive Date: 20051021
  Receipt Date: 20051012
  Transmission Date: 20060501
  Serious: Yes (Other)
  Sender: FDA-Public Use
  Company Number: SE-2005-016422

PATIENT

DRUGS (1)
  1. CAMPATH [Suspect]

REACTIONS (1)
  - DEAFNESS [None]
